FAERS Safety Report 4417558-9 (Version None)
Quarter: 2004Q3

REPORT INFORMATION
  Report Type: 
  Country: None (occurrence: None)
  Receive Date: 20040804
  Receipt Date: 20040729
  Transmission Date: 20050211
  Serious: Yes (Other)
  Sender: FDA-Public Use
  Company Number: A-CH2004-06991

PATIENT
  Age: 61 Year
  Sex: Female
  Weight: 80 kg

DRUGS (8)
  1. TRACLEER [Suspect]
     Indication: PULMONARY HYPERTENSION
     Dosage: 62.5 MG, BID, ORAL
     Route: 048
     Dates: start: 20040202, end: 20040207
  2. NIFEDIPINE [Concomitant]
  3. BUMETANIDE [Concomitant]
  4. NICORDANDIL (NICORDANDIL) [Concomitant]
  5. ZOPICLONE (ZOPICLONE) [Concomitant]
  6. PRAVASTATIN [Concomitant]
  7. LANSOPRAZOLE [Concomitant]
  8. WARFARIN (WARFARIN) [Concomitant]

REACTIONS (4)
  - DYSPNOEA [None]
  - NAUSEA [None]
  - RASH [None]
  - SWELLING FACE [None]
